FAERS Safety Report 9747743 (Version 2)
Quarter: 2014Q1

REPORT INFORMATION
  Report Type: Spontaneous
  Country: GB (occurrence: None)
  Receive Date: 20131206
  Receipt Date: 20140306
  Transmission Date: 20141002
  Serious: Yes (Hospitalization, Other)
  Sender: FDA-Public Use
  Company Number: AUR-APL-2013-09939

PATIENT
  Age: 61 Year
  Sex: Male
  Weight: 73 kg

DRUGS (18)
  1. RIBAVIRIN [Suspect]
     Indication: CHRONIC HEPATITIS C
     Route: 048
     Dates: start: 20120919, end: 20120926
  2. PEGINTERFERON ALFA-2B [Suspect]
     Indication: CHRONIC HEPATITIS C
     Dosage: 25.7143 MCG (180 MCG, 1 IN 1 WK), SUBCUTANEOUS
     Route: 058
     Dates: start: 20120919, end: 20120926
  3. TELAPREVIR [Suspect]
     Indication: CHRONIC HEPATITIS C
     Dosage: 2250 MG (750 MG, 3 IN 1 D), ORAL
     Route: 048
     Dates: start: 20120919, end: 20120926
  4. ADCAL (CARBAZOCHROME) [Concomitant]
  5. AMITRIPTYLINE (AMITRIPYLINE) [Concomitant]
  6. ASPIRIN (ACETYLSALICYLIC ACID) [Concomitant]
  7. BISOPROLOL (BISOPROLOL) [Concomitant]
  8. BUPRENORPHINE [Concomitant]
  9. FLUCLOXACILLIN (FLUCLOXACILLIN) [Concomitant]
  10. FOLIC ACID (FOLIC ACID) [Concomitant]
  11. GABAPENTIN (GABAPENTIN) [Concomitant]
  12. OMEPRAZOLE (OMEPRAZOLE) [Concomitant]
  13. PREDNISOLONE (PREDNISOLONE) [Concomitant]
  14. QUININE SULPHATE (QUININE SULFATE) [Concomitant]
  15. RAMIPRIL (RAMIPRIL) [Concomitant]
  16. SALBUTAMOL (SALBUTAMOL) [Concomitant]
  17. TIOTROPIUM (TIOTROPIUM) [Concomitant]
  18. LEKOVIT CA (LEKOVIT CA) [Concomitant]

REACTIONS (3)
  - Cellulitis [None]
  - Joint effusion [None]
  - Bursitis [None]
